FAERS Safety Report 7693868-7 (Version None)
Quarter: 2011Q3

REPORT INFORMATION
  Report Type: 
  Country: None (occurrence: None)
  Receive Date: 20110819
  Receipt Date: 20110810
  Transmission Date: 20111222
  Serious: Yes (Other)
  Sender: FDA-Public Use
  Company Number: US-AMGEN-USASP2010003864

PATIENT
  Age: 60 Year
  Sex: Female
  Weight: 88.435 kg

DRUGS (9)
  1. ENBREL [Suspect]
     Dosage: 50 MG, QWK
     Dates: start: 20060101, end: 20100317
  2. HUMIRA [Concomitant]
     Dosage: 40 G, Q2WK
     Dates: start: 20100317, end: 20100929
  3. POTASSIUM CHLORIDE [Concomitant]
  4. VITAMIN D [Concomitant]
  5. ASPIRIN [Concomitant]
  6. FOSAMAX PLUS D [Concomitant]
  7. PREDNISONE [Concomitant]
     Dosage: 5 MG, QD
  8. ANTIBIOTICS [Concomitant]
  9. ENBREL [Suspect]
     Indication: RHEUMATOID ARTHRITIS
     Dosage: 50 MG, QWK
     Route: 058
     Dates: start: 19990101, end: 20100701

REACTIONS (7)
  - RHEUMATOID ARTHRITIS [None]
  - DRUG EFFECT DECREASED [None]
  - PROCEDURAL PAIN [None]
  - BRONCHITIS [None]
  - BREAST CANCER STAGE I [None]
  - MAMMOPLASTY [None]
  - CEREBROVASCULAR ACCIDENT [None]
